FAERS Safety Report 9882180 (Version 3)
Quarter: 2015Q3

REPORT INFORMATION
  Report Type: Spontaneous
  Country: US (occurrence: US)
  Receive Date: 20140207
  Receipt Date: 20150922
  Transmission Date: 20151125
  Serious: Yes (Other)
  Sender: FDA-Public Use
  Company Number: US-TEVA-461590USA

PATIENT
  Age: 22 Year
  Sex: Female

DRUGS (2)
  1. CITALOPRAM HYDROBROMIDE. [Concomitant]
     Active Substance: CITALOPRAM HYDROBROMIDE
  2. CLARAVIS [Suspect]
     Active Substance: ISOTRETINOIN
     Indication: ACNE
     Route: 048
     Dates: start: 201307, end: 20140103

REACTIONS (10)
  - Affective disorder [Unknown]
  - Joint stiffness [Unknown]
  - Agitation [Unknown]
  - Arthralgia [Unknown]
  - Alopecia [Recovering/Resolving]
  - Suicidal ideation [Unknown]
  - Pain [Unknown]
  - Depression suicidal [Not Recovered/Not Resolved]
  - Depression [Not Recovered/Not Resolved]
  - Mental disorder [Unknown]

NARRATIVE: CASE EVENT DATE: 201311
